FAERS Safety Report 5049072-4 (Version None)
Quarter: 2006Q3

REPORT INFORMATION
  Report Type: 
  Country: None (occurrence: None)
  Receive Date: 20060706
  Receipt Date: 20060626
  Transmission Date: 20061208
  Serious: Yes (Death, Other)
  Sender: FDA-Public Use
  Company Number: 2006080853

PATIENT
  Age: 78 Year
  Sex: Female

DRUGS (9)
  1. ZYVOX [Suspect]
     Dosage: 1200 MG, INTRAVENOUS
     Route: 042
     Dates: start: 20060417, end: 20060501
  2. DIGOXIN [Concomitant]
  3. OMEPRAZOLE [Concomitant]
  4. WARFARIN SODIUM [Concomitant]
  5. CARVEDILOL [Concomitant]
  6. LOSARTAN POTASSIUM [Concomitant]
  7. DOBUTAMINE HCL [Concomitant]
  8. DOPAMINE HYDROCHLORIDE [Concomitant]
  9. NOREPINEPHRINE BITARTRATE [Concomitant]

REACTIONS (3)
  - PANCYTOPENIA [None]
  - PLATELET COUNT DECREASED [None]
  - SYSTEMIC CANDIDA [None]
